FAERS Safety Report 6140507-2 (Version None)
Quarter: 2009Q1

REPORT INFORMATION
  Report Type: 
  Country: None (occurrence: None)
  Receive Date: 20090331
  Receipt Date: 20090320
  Transmission Date: 20090719
  Serious: Yes (Hospitalization)
  Sender: FDA-Public Use
  Company Number: 2009SP006315

PATIENT
  Age: 55 Year
  Sex: Male

DRUGS (2)
  1. PEG-INTRON [Suspect]
     Indication: HEPATITIS C
     Dosage: SC
     Route: 058
     Dates: start: 20090206
  2. RIBASPHERE [Suspect]
     Indication: HEPATITIS C
     Dates: start: 20090206

REACTIONS (3)
  - BLOOD VISCOSITY INCREASED [None]
  - DIZZINESS [None]
  - ILL-DEFINED DISORDER [None]
